FAERS Safety Report 4977683-0 (Version None)
Quarter: 2006Q2

REPORT INFORMATION
  Report Type: 
  Country: None (occurrence: None)
  Receive Date: 20060420
  Receipt Date: 20051021
  Transmission Date: 20061013
  Serious: No
  Sender: FDA-Public Use
  Company Number: US-GLAXOSMITHKLINE-A0579185A

PATIENT
  Age: 60 Year
  Sex: Female

DRUGS (1)
  1. ESKALITH [Suspect]
     Indication: DEPRESSION
     Dosage: 450MG TWICE PER DAY
     Route: 048
     Dates: start: 19930101, end: 19930101

REACTIONS (2)
  - DYSPEPSIA [None]
  - STOMACH DISCOMFORT [None]
